FAERS Safety Report 8440864 (Version 4)
Quarter: 2016Q4

REPORT INFORMATION
  Report Type: Report from Study
  Country: CA (occurrence: CA)
  Receive Date: 20120305
  Receipt Date: 20161013
  Transmission Date: 20170207
  Serious: Yes (Other)
  Sender: FDA-Public Use
  Company Number: CA-ROCHE-1043511

PATIENT
  Age: 53 Year
  Sex: Female
  Weight: 56.75 kg

DRUGS (16)
  1. ADVAIR HFA [Concomitant]
     Active Substance: FLUTICASONE PROPIONATE\SALMETEROL XINAFOATE
  2. RITUXIMAB [Suspect]
     Active Substance: RITUXIMAB
     Indication: RHEUMATOID ARTHRITIS
     Dosage: LAST DOSE INFUSION ON DAY 1: 02/MAR/2015, DAY 15: 13/MAR/2015.
     Route: 042
     Dates: start: 20080108
  3. CELEBREX [Concomitant]
     Active Substance: CELECOXIB
  4. VITAMIN E [Concomitant]
     Active Substance: .ALPHA.-TOCOPHEROL
  5. METHOTREXATE. [Concomitant]
     Active Substance: METHOTREXATE
  6. VALTREX [Concomitant]
     Active Substance: VALACYCLOVIR HYDROCHLORIDE
  7. DIPHENHYDRAMINE HCL [Concomitant]
     Indication: PREMEDICATION
     Route: 048
     Dates: start: 20110323, end: 20110323
  8. DIPHENHYDRAMINE HCL [Concomitant]
     Route: 048
     Dates: start: 20080108
  9. FOLIC ACID. [Concomitant]
     Active Substance: FOLIC ACID
  10. SEROQUEL XR [Concomitant]
     Active Substance: QUETIAPINE FUMARATE
  11. CLONAZEPAM. [Concomitant]
     Active Substance: CLONAZEPAM
  12. METHYLPREDNISOLONE. [Concomitant]
     Active Substance: METHYLPREDNISOLONE
     Indication: PREMEDICATION
     Route: 042
     Dates: start: 20110323, end: 20110323
  13. ACETAMINOPHEN. [Concomitant]
     Active Substance: ACETAMINOPHEN
     Indication: PREMEDICATION
     Route: 048
     Dates: start: 20110323, end: 20110323
  14. ACETAMINOPHEN. [Concomitant]
     Active Substance: ACETAMINOPHEN
     Route: 048
     Dates: start: 20080108
  15. NEXIUM [Concomitant]
     Active Substance: ESOMEPRAZOLE MAGNESIUM
  16. METHYLPREDNISOLONE. [Concomitant]
     Active Substance: METHYLPREDNISOLONE
     Route: 042
     Dates: start: 20080108

REACTIONS (9)
  - Tibia fracture [Unknown]
  - Faeces soft [Recovered/Resolved]
  - Depression [Not Recovered/Not Resolved]
  - Migraine [Recovered/Resolved]
  - Foot fracture [Not Recovered/Not Resolved]
  - Fall [Unknown]
  - Nasopharyngitis [Unknown]
  - Acne [Recovering/Resolving]
  - Stress [Not Recovered/Not Resolved]

NARRATIVE: CASE EVENT DATE: 20111012
